FAERS Safety Report 15079646 (Version 1)
Quarter: 2018Q2

REPORT INFORMATION
  Report Type: Report from Study
  Country: US (occurrence: US)
  Receive Date: 20180627
  Receipt Date: 20180627
  Transmission Date: 20180711
  Serious: No
  Sender: FDA-Public Use
  Company Number: US-AMGEN-USASL2017017402

PATIENT
  Age: 77 Year
  Sex: Female
  Weight: 74.38 kg

DRUGS (2)
  1. PROLIA [Suspect]
     Active Substance: DENOSUMAB
     Dosage: UNK
     Route: 058
  2. PROLIA [Suspect]
     Active Substance: DENOSUMAB
     Indication: OSTEOPOROSIS
     Dosage: UNK, Q6MO
     Route: 058
     Dates: start: 2013, end: 20160624

REACTIONS (3)
  - Pain in jaw [Not Recovered/Not Resolved]
  - Temporomandibular joint syndrome [Unknown]
  - Drug dose omission [Unknown]
